FAERS Safety Report 8155984 (Version 6)
Quarter: 2015Q1

REPORT INFORMATION
  Report Type: Spontaneous
  Country: US (occurrence: US)
  Receive Date: 20110926
  Receipt Date: 20150328
  Transmission Date: 20150721
  Serious: Yes (Hospitalization, Other)
  Sender: FDA-Public Use
  Company Number: US-BIOGENIDEC-2011BI035478

PATIENT
  Age: 58 Year
  Sex: Female

DRUGS (3)
  1. AVONEX [Suspect]
     Active Substance: INTERFERON BETA-1A
     Indication: MULTIPLE SCLEROSIS
     Route: 030
     Dates: start: 2003
  2. AVONEX [Suspect]
     Active Substance: INTERFERON BETA-1A
     Indication: MULTIPLE SCLEROSIS
     Route: 030
     Dates: start: 19970328, end: 2003
  3. AVONEX [Suspect]
     Active Substance: INTERFERON BETA-1A
     Indication: MULTIPLE SCLEROSIS
     Route: 030

REACTIONS (21)
  - Urinary retention [Not Recovered/Not Resolved]
  - Confusional state [Unknown]
  - Osteomyelitis [Unknown]
  - Escherichia test positive [Unknown]
  - Weight bearing difficulty [Not Recovered/Not Resolved]
  - Dysarthria [Unknown]
  - Paraplegia [Not Recovered/Not Resolved]
  - Multiple sclerosis relapse [Recovered/Resolved]
  - Adverse drug reaction [Recovered/Resolved]
  - Overdose [Unknown]
  - Restless legs syndrome [Not Recovered/Not Resolved]
  - Staphylococcus test positive [Unknown]
  - Decubitus ulcer [Recovered/Resolved]
  - Seizure [Recovered/Resolved]
  - Central nervous system lesion [Unknown]
  - Pseudomonas test positive [Unknown]
  - Sleep apnoea syndrome [Not Recovered/Not Resolved]
  - Inappropriate schedule of drug administration [Recovered/Resolved]
  - Hypertension [Not Recovered/Not Resolved]
  - Hallucination [Not Recovered/Not Resolved]
  - Influenza like illness [Not Recovered/Not Resolved]

NARRATIVE: CASE EVENT DATE: 2002
